FAERS Safety Report 23368045 (Version 4)
Quarter: 2024Q3

REPORT INFORMATION
  Report Type: Spontaneous
  Country: US (occurrence: US)
  Receive Date: 20240105
  Receipt Date: 20240927
  Transmission Date: 20241016
  Serious: No
  Sender: BRISTOL MYERS SQUIBB
  Company Number: US-BRISTOL-MYERS SQUIBB COMPANY-2024-001603

PATIENT
  Age: 66 Year
  Sex: Male

DRUGS (3)
  1. LENALIDOMIDE [Suspect]
     Active Substance: LENALIDOMIDE
     Indication: Plasma cell myeloma
     Dosage: FREQUENCY: 21
     Route: 048
  2. LENALIDOMIDE [Suspect]
     Active Substance: LENALIDOMIDE
     Indication: Plasmacytoma
     Dosage: FREQUENCY: 21
     Route: 048
  3. LENALIDOMIDE [Suspect]
     Active Substance: LENALIDOMIDE
     Dosage: FREQUENCY: NEVER FILLED
     Route: 048

REACTIONS (8)
  - Dysphonia [Unknown]
  - Pharyngeal swelling [Unknown]
  - Insurance issue [Unknown]
  - Therapy interrupted [Unknown]
  - Eye pain [Recovering/Resolving]
  - Head discomfort [Recovering/Resolving]
  - Oropharyngeal discomfort [Recovering/Resolving]
  - Headache [Recovering/Resolving]
